FAERS Safety Report 6150231-8 (Version None)
Quarter: 2009Q2

REPORT INFORMATION
  Report Type: 
  Country: None (occurrence: None)
  Receive Date: 20090407
  Receipt Date: 20090327
  Transmission Date: 20091009
  Serious: Yes (Hospitalization)
  Sender: FDA-Public Use
  Company Number: WAES 0806USA07619

PATIENT
  Age: 59 Year
  Sex: Male

DRUGS (24)
  1. CAP VORINOSTAT [Suspect]
     Indication: NON-SMALL CELL LUNG CANCER
     Dosage: 400 MG/DAILY PO
     Route: 048
     Dates: start: 20080314, end: 20080327
  2. CAP VORINOSTAT [Suspect]
     Indication: NON-SMALL CELL LUNG CANCER
     Dosage: 400 MG/DAILY PO
     Route: 048
     Dates: start: 20080408, end: 20080421
  3. CAP VORINOSTAT [Suspect]
     Indication: NON-SMALL CELL LUNG CANCER
     Dosage: 400 MG/DAILY PO
     Route: 048
     Dates: start: 20080507, end: 20080520
  4. CAP VORINOSTAT [Suspect]
     Indication: NON-SMALL CELL LUNG CANCER
     Dosage: 400 MG/DAILY PO
     Route: 048
     Dates: start: 20080528, end: 20080610
  5. PACLITAXEL [Suspect]
     Indication: NON-SMALL CELL LUNG CANCER
     Dosage: 375 MG/1X IV, 374 MG/1X IV
     Route: 042
     Dates: start: 20080318, end: 20080318
  6. PACLITAXEL [Suspect]
     Indication: NON-SMALL CELL LUNG CANCER
     Dosage: 375 MG/1X IV, 374 MG/1X IV
     Route: 042
     Dates: start: 20080408, end: 20080408
  7. PACLITAXEL [Suspect]
     Indication: NON-SMALL CELL LUNG CANCER
     Dosage: 375 MG/1X IV, 374 MG/1X IV
     Route: 042
     Dates: start: 20080507, end: 20080507
  8. PACLITAXEL [Suspect]
     Indication: NON-SMALL CELL LUNG CANCER
     Dosage: 375 MG/1X IV, 374 MG/1X IV
     Route: 042
     Dates: start: 20080528, end: 20080528
  9. CARBOPLATIN [Suspect]
     Indication: NON-SMALL CELL LUNG CANCER
     Dosage: 708 MG/2X IV, 642 MG/2X IV
     Route: 042
     Dates: start: 20080318, end: 20080318
  10. CARBOPLATIN [Suspect]
     Indication: NON-SMALL CELL LUNG CANCER
     Dosage: 708 MG/2X IV, 642 MG/2X IV
     Route: 042
     Dates: start: 20080408, end: 20080408
  11. CARBOPLATIN [Suspect]
     Indication: NON-SMALL CELL LUNG CANCER
     Dosage: 708 MG/2X IV, 642 MG/2X IV
     Route: 042
     Dates: start: 20080507, end: 20080507
  12. CARBOPLATIN [Suspect]
     Indication: NON-SMALL CELL LUNG CANCER
     Dosage: 708 MG/2X IV, 642 MG/2X IV
     Route: 042
     Dates: start: 20080528, end: 20080528
  13. CORSODYL [Concomitant]
  14. NULYTELY [Concomitant]
  15. NOVORAPID [Concomitant]
  16. CHLORPHENIRAMINE MALEATE [Concomitant]
  17. CIMETIDINE HCL [Concomitant]
  18. CIPROFLOXACIN [Concomitant]
  19. COD LIVER OIL [Concomitant]
  20. DEXAMETHASONE TAB [Concomitant]
  21. DOMPERIDONE [Concomitant]
  22. FLUCONAZOLE [Concomitant]
  23. ONDANSETRON [Concomitant]
  24. UBIDECARENONE [Concomitant]

REACTIONS (5)
  - BLOOD PRESSURE SYSTOLIC INCREASED [None]
  - NEUTROPENIC SEPSIS [None]
  - RASH [None]
  - RHINORRHOEA [None]
  - VOMITING [None]
